FAERS Safety Report 6347897-6 (Version None)
Quarter: 2009Q3

REPORT INFORMATION
  Report Type: 
  Country: None (occurrence: None)
  Receive Date: 20090910
  Receipt Date: 20090828
  Transmission Date: 20100115
  Serious: Yes (Hospitalization)
  Sender: FDA-Public Use
  Company Number: NO-PFIZER INC-2009261468

PATIENT

DRUGS (1)
  1. CHAMPIX [Suspect]
     Indication: SMOKING CESSATION THERAPY
     Dosage: UNK
     Route: 048

REACTIONS (6)
  - ABDOMINAL PAIN UPPER [None]
  - APATHY [None]
  - DIZZINESS [None]
  - INSOMNIA [None]
  - NIGHTMARE [None]
  - VISION BLURRED [None]
